FAERS Safety Report 24281175 (Version 1)
Quarter: 2024Q3

REPORT INFORMATION
  Report Type: Spontaneous
  Country: US (occurrence: US)
  Receive Date: 20240904
  Receipt Date: 20240904
  Transmission Date: 20241016
  Serious: Yes (Other)
  Sender: ABBVIE
  Company Number: US-ABBVIE-5901764

PATIENT
  Sex: Male

DRUGS (1)
  1. HUMIRA [Suspect]
     Active Substance: ADALIMUMAB
     Indication: Hidradenitis
     Route: 058
     Dates: start: 202210, end: 202311

REACTIONS (3)
  - Skin cancer [Unknown]
  - Cardiomyopathy [Unknown]
  - Hidradenitis [Unknown]

NARRATIVE: CASE EVENT DATE: 20240101
